FAERS Safety Report 19739193 (Version 2)
Quarter: 2021Q3

REPORT INFORMATION
  Report Type: Spontaneous
  Country: SI (occurrence: SI)
  Receive Date: 20210823
  Receipt Date: 20210825
  Transmission Date: 20211014
  Serious: Yes (Other)
  Sender: FDA-Public Use
  Company Number: SI-PFIZER INC-202100960960

PATIENT
  Age: 87 Year
  Sex: Male

DRUGS (9)
  1. RIFINAH [Concomitant]
     Active Substance: ISONIAZID\RIFAMPIN
     Indication: ANTI-INFECTIVE THERAPY
     Dosage: 300MG/150MG LONG THERAPY
     Dates: start: 20210604
  2. ZYVOXID [Suspect]
     Active Substance: LINEZOLID
     Indication: ANTIBIOTIC THERAPY
     Dosage: 600 MG, TWICE DAILY FOR 3 WEEKS
     Route: 048
     Dates: start: 202104
  3. EDEMID [Concomitant]
     Active Substance: FUROSEMIDE
     Indication: DIURETIC THERAPY
     Dosage: UNK
  4. CONCOR [Concomitant]
     Active Substance: BISOPROLOL FUMARATE
     Indication: CARDIAC DISORDER
     Dosage: UNK
  5. NIFECARD [NIFEDIPINE] [Concomitant]
     Indication: HYPERTENSION
     Dosage: UNK
  6. AMARYL [Concomitant]
     Active Substance: GLIMEPIRIDE
     Indication: DIABETES MELLITUS
     Dosage: 6 MG
  7. RIFINAH [Concomitant]
     Active Substance: ISONIAZID\RIFAMPIN
     Dosage: 150/100 MG
     Dates: start: 20210702
  8. ZYVOXID [Suspect]
     Active Substance: LINEZOLID
     Indication: ANTI-INFECTIVE THERAPY
     Dosage: 600 MG, TWICE DAILY FOR 6 WEEKS
     Route: 048
     Dates: start: 20210604
  9. LINEX [LACTOBACILLUS ACIDOPHILUS] [Concomitant]
     Indication: PROPHYLAXIS
     Dosage: UNK

REACTIONS (6)
  - Abdominal distension [Not Recovered/Not Resolved]
  - Diarrhoea [Recovering/Resolving]
  - Pruritus [Recovered/Resolved]
  - Vomiting [Recovered/Resolved]
  - Rash [Recovered/Resolved]
  - Wound [Unknown]

NARRATIVE: CASE EVENT DATE: 2021
